FAERS Safety Report 20672578 (Version 1)
Quarter: 2022Q2

REPORT INFORMATION
  Report Type: Spontaneous
  Country: US (occurrence: None)
  Receive Date: 20220405
  Receipt Date: 20220405
  Transmission Date: 20220721
  Serious: Yes (Other)
  Sender: FDA-Public Use
  Company Number: US-ROCHE-3058255

PATIENT
  Sex: Male

DRUGS (3)
  1. OCREVUS [Suspect]
     Active Substance: OCRELIZUMAB
     Indication: Multiple sclerosis
     Dosage: ON DAY 1 AND THEN 300 MG 2 WEEKS LATER THEN 600 MG EVERY 6 MONTHS?LAST OCREVUS INFUSION 600 MG IV JA
     Route: 042
     Dates: start: 202012
  2. ESCITALOPRAM [Concomitant]
     Active Substance: ESCITALOPRAM OXALATE
  3. EVUSHELD [Concomitant]
     Active Substance: CILGAVIMAB\TIXAGEVIMAB
     Route: 030

REACTIONS (4)
  - Constipation [Unknown]
  - Feeling hot [Unknown]
  - Rectal haemorrhage [Unknown]
  - Multiple sclerosis [Unknown]
